FAERS Safety Report 6499220-4 (Version None)
Quarter: 2009Q4

REPORT INFORMATION
  Report Type: 
  Country: None (occurrence: None)
  Receive Date: 20091215
  Receipt Date: 20091203
  Transmission Date: 20100525
  Serious: Yes (Other)
  Sender: FDA-Public Use
  Company Number: PHHY2009JP52126

PATIENT
  Age: 37 Year
  Sex: Female

DRUGS (1)
  1. TEGRETOL [Suspect]
     Indication: CENTRAL PAIN SYNDROME
     Dosage: 200 MG, UNK
     Route: 048
     Dates: start: 20091118

REACTIONS (3)
  - CONVULSION [None]
  - PAIN [None]
  - SOMNOLENCE [None]
